FAERS Safety Report 15122765 (Version 1)
Quarter: 2018Q3

REPORT INFORMATION
  Report Type: Spontaneous
  Country: SE (occurrence: SE)
  Receive Date: 20180709
  Receipt Date: 20180709
  Transmission Date: 20181010
  Serious: Yes (Hospitalization)
  Sender: FDA-Public Use
  Company Number: SE-MYLANLABS-2018M1048299

PATIENT
  Age: 40 Year
  Sex: Male
  Weight: 95 kg

DRUGS (1)
  1. AZATHIOPRINE. [Suspect]
     Active Substance: AZATHIOPRINE
     Indication: CROHN^S DISEASE

REACTIONS (1)
  - Nodular melanoma [Not Recovered/Not Resolved]

NARRATIVE: CASE EVENT DATE: 20180102
